FAERS Safety Report 4333130-3 (Version None)
Quarter: 2004Q2

REPORT INFORMATION
  Report Type: 
  Country: None (occurrence: None)
  Receive Date: 20040406
  Receipt Date: 20040317
  Transmission Date: 20050107
  Serious: Yes (Hospitalization)
  Sender: FDA-Public Use
  Company Number: PHBS2004JP03992

PATIENT
  Age: 64 Year
  Sex: Male

DRUGS (2)
  1. MAPROTILINE HYDROCHLORIDE [Suspect]
     Indication: MAJOR DEPRESSION
     Dosage: 30 MG/DAY
     Route: 048
  2. SULPIRIDE [Concomitant]
     Dosage: 150 MG/DAY

REACTIONS (11)
  - ABNORMAL BEHAVIOUR [None]
  - ANXIETY [None]
  - COMMUNICATION DISORDER [None]
  - CSF PROTEIN INCREASED [None]
  - DEPRESSION [None]
  - DISTURBANCE IN ATTENTION [None]
  - EATING DISORDER [None]
  - HEADACHE [None]
  - ORTHOSTATIC HYPOTENSION [None]
  - THOUGHT BLOCKING [None]
  - TINNITUS [None]
